FAERS Safety Report 17844919 (Version 1)
Quarter: 2020Q2

REPORT INFORMATION
  Report Type: Other
  Country: MX (occurrence: MX)
  Receive Date: 20200601
  Receipt Date: 20200601
  Transmission Date: 20200714
  Serious: Yes (Death)
  Sender: FDA-Public Use
  Company Number: MX-HEALTHCARE PHARMACEUTICALS LTD.-2085310

PATIENT
  Age: 4 Year
  Sex: Male

DRUGS (4)
  1. DOXORUBICIN HYDROCHLORIDE. [Suspect]
     Active Substance: DOXORUBICIN HYDROCHLORIDE
     Indication: HEPATOBLASTOMA
     Route: 065
  2. VINCRISTINE [Concomitant]
     Active Substance: VINCRISTINE
     Route: 065
  3. CISPLATIN. [Concomitant]
     Active Substance: CISPLATIN
     Route: 065
  4. FLUOROURACIL. [Concomitant]
     Active Substance: FLUOROURACIL
     Route: 065

REACTIONS (2)
  - Septic shock [Fatal]
  - Febrile neutropenia [Fatal]
